FAERS Safety Report 5434597-X (Version None)
Quarter: 2007Q3

REPORT INFORMATION
  Report Type: 
  Country: None (occurrence: None)
  Receive Date: 20070831
  Receipt Date: 20070802
  Transmission Date: 20080115
  Serious: No
  Sender: FDA-Public Use
  Company Number: A0667493A

PATIENT
  Age: 35 Year
  Sex: Male

DRUGS (1)
  1. ALLI [Suspect]

REACTIONS (5)
  - COUGH [None]
  - IMMUNE SYSTEM DISORDER [None]
  - MALAISE [None]
  - PHARYNGITIS [None]
  - PYREXIA [None]
